FAERS Safety Report 9084800 (Version 2)
Quarter: 2013Q1

REPORT INFORMATION
  Report Type: Spontaneous
  Country: NZ (occurrence: NZ)
  Receive Date: 20130130
  Receipt Date: 20130325
  Transmission Date: 20140127
  Serious: Yes (Hospitalization, Other)
  Sender: FDA-Public Use
  Company Number: PHHY2009NZ070366

PATIENT
  Age: 67 Year
  Sex: Male

DRUGS (2)
  1. GLIVEC [Suspect]
     Indication: CHRONIC MYELOID LEUKAEMIA
     Dosage: 400 MG
     Route: 048
     Dates: start: 20080810
  2. GLIVEC [Suspect]
     Dosage: 600 MG
     Route: 048
     Dates: start: 20110905

REACTIONS (4)
  - Prostate cancer [Recovered/Resolved]
  - Prostatomegaly [Recovered/Resolved]
  - Prostatic specific antigen increased [Not Recovered/Not Resolved]
  - Second primary malignancy [Unknown]
